FAERS Safety Report 24354135 (Version 1)
Quarter: 2024Q3

REPORT INFORMATION
  Report Type: Spontaneous
  Country: FR (occurrence: FR)
  Receive Date: 20240923
  Receipt Date: 20240923
  Transmission Date: 20241016
  Serious: Yes (Death, Other)
  Sender: JOHNSON AND JOHNSON
  Company Number: FR-JNJFOC-20240422760

PATIENT
  Sex: Female
  Weight: 82 kg

DRUGS (7)
  1. TALVEY [Suspect]
     Active Substance: TALQUETAMAB-TGVS
     Indication: Product used for unknown indication
     Dosage: 2 VIALS PER 2 WEEK
     Route: 065
     Dates: start: 20240207
  2. TALVEY [Suspect]
     Active Substance: TALQUETAMAB-TGVS
     Route: 065
     Dates: start: 20240411
  3. TALVEY [Suspect]
     Active Substance: TALQUETAMAB-TGVS
     Route: 065
     Dates: start: 20240425
  4. TALVEY [Suspect]
     Active Substance: TALQUETAMAB-TGVS
     Route: 065
     Dates: start: 20240510
  5. TALVEY [Suspect]
     Active Substance: TALQUETAMAB-TGVS
     Route: 065
     Dates: start: 20240523
  6. TALVEY [Suspect]
     Active Substance: TALQUETAMAB-TGVS
     Dosage: 1 VIAL PER1 WEEK
     Route: 065
     Dates: start: 202406, end: 20240711
  7. ELRANATAMAB [Concomitant]
     Active Substance: ELRANATAMAB
     Indication: Product used for unknown indication

REACTIONS (4)
  - Death [Fatal]
  - Cytokine release syndrome [Unknown]
  - Plasma cell myeloma [Unknown]
  - Bone pain [Unknown]

NARRATIVE: CASE EVENT DATE: 20240701
